FAERS Safety Report 16058723 (Version 1)
Quarter: 2019Q1

REPORT INFORMATION
  Report Type: Report from Study
  Country: US (occurrence: US)
  Receive Date: 20190311
  Receipt Date: 20190311
  Transmission Date: 20190418
  Serious: Yes (Hospitalization, Other)
  Sender: FDA-Public Use
  Company Number: US-GILEAD-2019-0395620

PATIENT
  Age: 23 Year
  Sex: Female

DRUGS (11)
  1. AZTREONAM LYSINE [Suspect]
     Active Substance: AZTREONAM LYSINE
     Indication: PRODUCT USED FOR UNKNOWN INDICATION
     Dosage: 75 MG, TID
     Route: 055
     Dates: start: 20170215
  2. TOBI [Concomitant]
     Active Substance: TOBRAMYCIN
  3. MEROPENEM. [Concomitant]
     Active Substance: MEROPENEM
  4. MVW COMPLETE FORMULATION D3000 [Concomitant]
  5. FLUCONAZOLE. [Concomitant]
     Active Substance: FLUCONAZOLE
  6. COLISTIMETHATE SODIUM. [Concomitant]
     Active Substance: COLISTIMETHATE SODIUM
  7. METRONIDAZOLE. [Concomitant]
     Active Substance: METRONIDAZOLE
  8. SYMDEKO [Concomitant]
     Active Substance: IVACAFTOR\TEZACAFTOR
  9. ZENPEP [Concomitant]
     Active Substance: PANCRELIPASE AMYLASE\PANCRELIPASE LIPASE\PANCRELIPASE PROTEASE
  10. PERMETHRIN. [Concomitant]
     Active Substance: PERMETHRIN
  11. HYDROCORT [HYDROCORTISONE ACETATE] [Concomitant]

REACTIONS (1)
  - Gastrointestinal tube insertion [Recovered/Resolved]

NARRATIVE: CASE EVENT DATE: 20190211
